FAERS Safety Report 5962219-8 (Version None)
Quarter: 2008Q4

REPORT INFORMATION
  Report Type: 
  Country: None (occurrence: None)
  Receive Date: 20081121
  Receipt Date: 20081114
  Transmission Date: 20090506
  Serious: Yes (Other)
  Sender: FDA-Public Use
  Company Number: US-ASTRAZENECA-2008UW17095

PATIENT
  Age: 77 Year
  Sex: Male
  Weight: 95.3 kg

DRUGS (17)
  1. CRESTOR [Suspect]
     Indication: BLOOD CHOLESTEROL INCREASED
     Route: 048
     Dates: start: 20080813, end: 20080101
  2. CRESTOR [Suspect]
     Route: 048
     Dates: start: 20080101
  3. HYDROCHLOROTHIAZIDE [Concomitant]
  4. LISINOPRIL [Concomitant]
  5. CLONIDINE [Concomitant]
  6. METOPROLOL [Concomitant]
     Dosage: 12.5 MG IN AM AND 25 MG PM
  7. WARFARIN SODIUM [Concomitant]
  8. PLAVIX [Concomitant]
     Dates: start: 20080812
  9. PROTONIX [Concomitant]
  10. BENADRYL [Concomitant]
  11. ASPIRIN [Concomitant]
  12. M.V.I. [Concomitant]
  13. IRON [Concomitant]
  14. ZANTAC [Concomitant]
  15. BENIFIBER [Concomitant]
  16. OXYCODONE HCL [Concomitant]
     Indication: ARTHRALGIA
  17. HYDRALAZINE HCL [Concomitant]

REACTIONS (13)
  - ABDOMINAL DISCOMFORT [None]
  - ASTHENIA [None]
  - BLOOD PRESSURE INCREASED [None]
  - DIZZINESS [None]
  - FATIGUE [None]
  - GASTROOESOPHAGEAL REFLUX DISEASE [None]
  - HEADACHE [None]
  - HYPERTENSION [None]
  - LIPIDS INCREASED [None]
  - MUSCLE SPASMS [None]
  - NAUSEA [None]
  - RHINORRHOEA [None]
  - VOMITING [None]
